FAERS Safety Report 10398137 (Version 2)
Quarter: 2014Q4

REPORT INFORMATION
  Report Type: Spontaneous
  Country: US (occurrence: US)
  Receive Date: 20140821
  Receipt Date: 20141021
  Transmission Date: 20150528
  Serious: Yes (Other)
  Sender: FDA-Public Use
  Company Number: US-ROCHE-1451412

PATIENT

DRUGS (1)
  1. XOLAIR [Suspect]
     Active Substance: OMALIZUMAB
     Indication: PRODUCT USED FOR UNKNOWN INDICATION
     Route: 065

REACTIONS (7)
  - Tendonitis [Unknown]
  - Dizziness [Unknown]
  - Cytokine storm [Unknown]
  - Injection site reaction [Unknown]
  - Headache [Unknown]
  - Chest pain [Unknown]
  - Product quality issue [Unknown]
